FAERS Safety Report 23643112 (Version 2)
Quarter: 2024Q2

REPORT INFORMATION
  Report Type: Spontaneous
  Country: US (occurrence: US)
  Receive Date: 20240318
  Receipt Date: 20240430
  Transmission Date: 20240715
  Serious: No
  Sender: FDA-Public Use
  Company Number: US-PFIZER INC-PV202400036052

PATIENT
  Age: 45 Year
  Sex: Female

DRUGS (1)
  1. NURTEC ODT [Suspect]
     Active Substance: RIMEGEPANT SULFATE
     Indication: Migraine
     Dosage: 1 TABLET ON THE TONGUE AND ALLOW TO DISSOLVE AS NEEDED DAILY
     Route: 048

REACTIONS (3)
  - COVID-19 [Unknown]
  - Cognitive disorder [Recovered/Resolved]
  - Off label use [Unknown]
